FAERS Safety Report 7349869-1 (Version None)
Quarter: 2011Q1

REPORT INFORMATION
  Report Type: 
  Country: None (occurrence: None)
  Receive Date: 20110314
  Receipt Date: 20110304
  Transmission Date: 20110831
  Serious: Yes (Death)
  Sender: FDA-Public Use
  Company Number: JP-PFIZER INC-2011051741

PATIENT
  Age: 59 Year
  Sex: Female

DRUGS (1)
  1. CELECOX [Suspect]
     Indication: RHEUMATOID ARTHRITIS
     Dosage: 400 MG/D
     Route: 048
     Dates: start: 20100120

REACTIONS (1)
  - DEATH [None]
